FAERS Safety Report 5426431-9 (Version None)
Quarter: 2007Q3

REPORT INFORMATION
  Report Type: 
  Country: None (occurrence: None)
  Receive Date: 20070731
  Receipt Date: 20070529
  Transmission Date: 20080115
  Serious: No
  Sender: FDA-Public Use
  Company Number: US200706006148

PATIENT
  Age: 54 Year
  Sex: Female
  Weight: 102.5 kg

DRUGS (5)
  1. BYETTA [Suspect]
     Dosage: 5 UG, 2/D, SUBCUTAEOUS 10 UG, 2/D
     Route: 058
     Dates: start: 20051001, end: 20051001
  2. BYETTA [Suspect]
     Dosage: 5 UG, 2/D, SUBCUTAEOUS 10 UG, 2/D
     Route: 058
     Dates: start: 20051001
  3. EXANATIDE 5MCG PEN, DISPOSABLE DEVICE (EXANATIDE PEN (5MCG)) PEN,DISPO [Concomitant]
  4. EXANATIDE 10MCG PEN,DISPOSABLE DEVICE (EXENATIDE PEN (10MCG)) PEN,DISP [Concomitant]
  5. METFORMIN HCL [Concomitant]

REACTIONS (4)
  - COUGH [None]
  - DRY THROAT [None]
  - POLLAKIURIA [None]
  - WEIGHT FLUCTUATION [None]
